FAERS Safety Report 8462192-7 (Version None)
Quarter: 2012Q2

REPORT INFORMATION
  Report Type: 
  Country: None (occurrence: None)
  Receive Date: 20120625
  Receipt Date: 20120619
  Transmission Date: 20120825
  Serious: Yes (Hospitalization)
  Sender: FDA-Public Use
  Company Number: PHHO2012US008386

PATIENT
  Age: 49 Year
  Sex: Female
  Weight: 70.5 kg

DRUGS (3)
  1. BORTEZOMIB [Suspect]
     Indication: WALDENSTROM'S MACROGLOBULINAEMIA
     Dosage: UNK
     Route: 042
     Dates: start: 20120218, end: 20120504
  2. AFINITOR [Suspect]
     Indication: WALDENSTROM'S MACROGLOBULINAEMIA
     Dosage: 5 MG, QD
     Route: 048
     Dates: start: 20110218, end: 20120504
  3. COMPARATOR RITUXIMAB [Suspect]
     Indication: MULTIPLE SCLEROSIS
     Dosage: UNK

REACTIONS (4)
  - THROMBOTIC THROMBOCYTOPENIC PURPURA [None]
  - HAEMOLYTIC URAEMIC SYNDROME [None]
  - MICROANGIOPATHIC HAEMOLYTIC ANAEMIA [None]
  - HAEMORRHAGE INTRACRANIAL [None]
